FAERS Safety Report 4989206-0 (Version None)
Quarter: 2006Q1

REPORT INFORMATION
  Report Type: 
  Country: None (occurrence: None)
  Receive Date: 20060314
  Receipt Date: 20060210
  Transmission Date: 20060701
  Serious: Yes (Hospitalization)
  Sender: FDA-Public Use
  Company Number: 2006-00300

PATIENT
  Age: 76 Year
  Sex: Male
  Weight: 88.4 kg

DRUGS (12)
  1. VELCADE [Suspect]
     Indication: MULTIPLE MYELOMA
     Dates: start: 20050823, end: 20050922
  2. ZOFRAN [Concomitant]
  3. ZOMETA [Concomitant]
  4. ARANESP [Concomitant]
  5. COREG [Concomitant]
  6. ^CLYBART^ (SODIUM PHOSPHATE DIBASIC,SODIUM PHOSPHATE) [Concomitant]
  7. CYMBALTA [Concomitant]
  8. NEXIUM [Concomitant]
  9. COMPAZINE [Concomitant]
  10. ATIVAN [Concomitant]
  11. ADVIL [Concomitant]
  12. COLACE (DOCUSATE SODIUM) [Concomitant]

REACTIONS (9)
  - ABDOMINAL PAIN [None]
  - APATHY [None]
  - ASTHENIA [None]
  - DEPRESSED LEVEL OF CONSCIOUSNESS [None]
  - HEADACHE [None]
  - HYPONATRAEMIA [None]
  - NAUSEA [None]
  - THROMBOCYTOPENIA [None]
  - VOMITING [None]
